FAERS Safety Report 16006485 (Version 1)
Quarter: 2019Q1

REPORT INFORMATION
  Report Type: Spontaneous
  Country: US (occurrence: US)
  Receive Date: 20190226
  Receipt Date: 20190226
  Transmission Date: 20190418
  Serious: No
  Sender: FDA-Public Use
  Company Number: US-FERRINGPH-2018FE04734

PATIENT
  Sex: Male

DRUGS (1)
  1. STIMATE [Suspect]
     Active Substance: DESMOPRESSIN ACETATE
     Indication: FACTOR VIII DEFICIENCY
     Dosage: 1 SPRAY IN EACH NOSTRIL ONCE IN 24 HOURS, MAY REPEAT IN 24 HOURS, DO NOT USE MORE THAN 3
     Route: 045
     Dates: start: 20120907

REACTIONS (1)
  - Gingival bleeding [Unknown]
